FAERS Safety Report 13516987 (Version 2)
Quarter: 2017Q2

REPORT INFORMATION
  Report Type: Spontaneous
  Country: US (occurrence: US)
  Receive Date: 20170505
  Receipt Date: 20170511
  Transmission Date: 20170830
  Serious: No
  Sender: FDA-Public Use
  Company Number: US-PFIZER INC-2017199440

PATIENT
  Age: 61 Year
  Sex: Female
  Weight: 118 kg

DRUGS (5)
  1. AMLODIPINE BESYLATE. [Concomitant]
     Active Substance: AMLODIPINE BESYLATE
     Indication: BLOOD CHOLESTEROL
     Dosage: 100 MG, 1X/DAY
  2. GABAPENTIN. [Suspect]
     Active Substance: GABAPENTIN
     Indication: FIBROMYALGIA
     Dosage: 600 MG, 3X/DAY (TWO 300 MG CAPSULES)
     Route: 048
     Dates: start: 201704
  3. GABAPENTIN. [Suspect]
     Active Substance: GABAPENTIN
     Indication: NEURALGIA
  4. EFFEXOR [Concomitant]
     Active Substance: VENLAFAXINE HYDROCHLORIDE
     Indication: BIPOLAR DISORDER
     Dosage: 300 MG, 1X/DAY (TWO 150MG ONCE A DAY)
  5. DIVALPROEX [Concomitant]
     Active Substance: DIVALPROEX SODIUM
     Indication: BIPOLAR DISORDER
     Dosage: 1000 MG, 1X/DAY (TWO 500MG ONCE PER DAY)

REACTIONS (1)
  - Drug ineffective [Unknown]

NARRATIVE: CASE EVENT DATE: 2017
